FAERS Safety Report 6644766-9 (Version None)
Quarter: 2010Q1

REPORT INFORMATION
  Report Type: 
  Country: None (occurrence: None)
  Receive Date: 20100305
  Receipt Date: 20100222
  Transmission Date: 20100710
  Serious: No
  Sender: FDA-Public Use
  Company Number: 2010-00279

PATIENT
  Age: 22 Year
  Sex: Male
  Weight: 86.1834 kg

DRUGS (1)
  1. ZICAM INTENSE SINUS RELIEF [Suspect]
     Dosage: QD - 1 DOSE
     Dates: start: 20100221, end: 20100222

REACTIONS (1)
  - ANOSMIA [None]
